FAERS Safety Report 8267825-6 (Version None)
Quarter: 2012Q2

REPORT INFORMATION
  Report Type: 
  Country: None (occurrence: None)
  Receive Date: 20120409
  Receipt Date: 20120331
  Transmission Date: 20120825
  Serious: Yes (Hospitalization)
  Sender: FDA-Public Use
  Company Number: US-AMGEN-USASP2012011510

PATIENT
  Age: 69 Year
  Sex: Female

DRUGS (1)
  1. ENBREL [Suspect]
     Indication: RHEUMATOID ARTHRITIS
     Dosage: 50 MG, QWK
     Dates: start: 20060602, end: 20120319

REACTIONS (7)
  - RHEUMATOID ARTHRITIS [None]
  - POST PROCEDURAL DRAINAGE [None]
  - PAIN [None]
  - SKIN DISCOLOURATION [None]
  - MUSCULOSKELETAL STIFFNESS [None]
  - IMPAIRED HEALING [None]
  - INTESTINAL MASS [None]
